FAERS Safety Report 5909754-6 (Version None)
Quarter: 2008Q4

REPORT INFORMATION
  Report Type: 
  Country: None (occurrence: None)
  Receive Date: 20081002
  Receipt Date: 20080919
  Transmission Date: 20090506
  Serious: Yes (Life-Threatening, Other)
  Sender: FDA-Public Use
  Company Number: 1000004073

PATIENT
  Age: 19 Year
  Sex: Male

DRUGS (7)
  1. ESCITALOPRAM [Suspect]
     Dosage: (400 MG, ONCE), ORAL
     Route: 048
  2. ALPRAZOLAM [Suspect]
     Dosage: (15 MG, ONCE), ORAL
     Route: 048
  3. AMINEURIN (50 MILLIGRAM) [Suspect]
     Dosage: 2500 MG, ONCE), ORAL
     Route: 048
  4. CLOSIN (25 MILLIGRAM) [Suspect]
     Dosage: (250 MG, ONCE), ORAL
     Route: 048
  5. EDRONAX(4 MILLIGRAM) [Suspect]
     Dosage: 80 MG, ONCE) , ORAL
     Route: 048
  6. NALOREX (50 MILLIGRAM) [Suspect]
     Dosage: (300 MG, ONCE) , ORAL
     Route: 048
  7. VODKA [Suspect]
     Dosage: 1 BOTTLE (ONCE), ORAL
     Route: 048

REACTIONS (5)
  - ALCOHOL USE [None]
  - INTENTIONAL OVERDOSE [None]
  - RESPIRATORY DEPRESSION [None]
  - SOPOR [None]
  - SUICIDE ATTEMPT [None]
